FAERS Safety Report 12801903 (Version 1)
Quarter: 2016Q4

REPORT INFORMATION
  Report Type: Report from Study
  Country: US (occurrence: US)
  Receive Date: 20161003
  Receipt Date: 20161003
  Transmission Date: 20170207
  Serious: Yes (Other)
  Sender: FDA-Public Use
  Company Number: US-AMGEN-USASL2016133774

PATIENT

DRUGS (1)
  1. KYPROLIS [Suspect]
     Active Substance: CARFILZOMIB
     Indication: PRODUCT USED FOR UNKNOWN INDICATION
     Dosage: UNK
     Route: 065

REACTIONS (11)
  - Osteonecrosis of jaw [Unknown]
  - Acute kidney injury [Unknown]
  - Cellulitis [Unknown]
  - Angina pectoris [Unknown]
  - Ingrowing nail [Unknown]
  - Pain in jaw [Unknown]
  - Anaemia [Unknown]
  - Chronic kidney disease [Unknown]
  - Adverse drug reaction [Unknown]
  - Dysuria [Unknown]
  - Electrolyte imbalance [Unknown]

NARRATIVE: CASE EVENT DATE: 20140922
